FAERS Safety Report 4810998-5 (Version None)
Quarter: 2005Q4

REPORT INFORMATION
  Report Type: 
  Country: None (occurrence: None)
  Receive Date: 20051025
  Receipt Date: 20051014
  Transmission Date: 20060501
  Serious: Yes (Hospitalization)
  Sender: FDA-Public Use
  Company Number: SU-2005-004143

PATIENT
  Sex: Male

DRUGS (7)
  1. BENICAR HCT [Suspect]
     Indication: HYPERTENSION
     Dosage: MG UNK PO
     Route: 048
     Dates: end: 20050901
  2. TIKOSYN [Suspect]
     Indication: ATRIAL FIBRILLATION
     Dosage: 500 MCG BID PO
     Route: 048
     Dates: start: 20050901
  3. BETAPACE [Concomitant]
  4. BENICAR [Concomitant]
  5. NEURONTIN [Concomitant]
  6. VALIUM [Concomitant]
  7. AMBIEN [Concomitant]

REACTIONS (4)
  - ATRIAL FIBRILLATION [None]
  - DRUG INEFFECTIVE [None]
  - DRUG INTERACTION [None]
  - INCORRECT DOSE ADMINISTERED [None]
